FAERS Safety Report 10350976 (Version 1)
Quarter: 2014Q3

REPORT INFORMATION
  Report Type: Spontaneous
  Country: US (occurrence: US)
  Receive Date: 20140730
  Receipt Date: 20140730
  Transmission Date: 20150326
  Serious: Yes (Other)
  Sender: FDA-Public Use
  Company Number: US-CELGENEUS-163-21880-14073795

PATIENT
  Sex: Female

DRUGS (2)
  1. REVLIMID [Suspect]
     Active Substance: LENALIDOMIDE
     Dosage: 25 MILLIGRAM
     Route: 048
     Dates: start: 201406
  2. REVLIMID [Suspect]
     Active Substance: LENALIDOMIDE
     Indication: ANAEMIA
     Dosage: 5 MILLIGRAM
     Route: 048
     Dates: start: 201307, end: 2013

REACTIONS (4)
  - Laryngospasm [Unknown]
  - Visual impairment [Unknown]
  - Muscle spasms [Unknown]
  - Tremor [Unknown]

NARRATIVE: CASE EVENT DATE: 2014
